FAERS Safety Report 25565364 (Version 2)
Quarter: 2025Q3

REPORT INFORMATION
  Report Type: Spontaneous
  Country: US (occurrence: US)
  Receive Date: 20250716
  Receipt Date: 20250725
  Transmission Date: 20251020
  Serious: Yes (Disabling)
  Sender: GILEAD
  Company Number: US-GILEAD-2025-0720663

PATIENT
  Age: 59 Year
  Sex: Male

DRUGS (2)
  1. LENACAPAVIR [Suspect]
     Active Substance: LENACAPAVIR
     Indication: HIV infection
     Route: 065
     Dates: start: 202506
  2. CANOVA [Concomitant]
     Indication: Product used for unknown indication
     Route: 065
     Dates: start: 202506

REACTIONS (4)
  - Pain [Recovering/Resolving]
  - Decreased appetite [Recovering/Resolving]
  - Photophobia [Recovering/Resolving]
  - Oedema peripheral [Unknown]

NARRATIVE: CASE EVENT DATE: 20250714
